FAERS Safety Report 8955147 (Version 1)
Quarter: 2012Q4

REPORT INFORMATION
  Report Type: Report from Study
  Country: US (occurrence: US)
  Receive Date: 20121207
  Receipt Date: 20121207
  Transmission Date: 20130627
  Serious: Yes (Other)
  Sender: FDA-Public Use
  Company Number: US-ROCHE-1165651

PATIENT
  Sex: Female

DRUGS (3)
  1. CAPECITABINE [Suspect]
     Indication: NEOPLASM MALIGNANT
     Route: 065
  2. CAPECITABINE [Suspect]
     Route: 065
  3. LASIX [Concomitant]

REACTIONS (2)
  - Oedema peripheral [Unknown]
  - Dyspepsia [Unknown]
